FAERS Safety Report 4341002-3 (Version None)
Quarter: 2004Q2

REPORT INFORMATION
  Report Type: 
  Country: None (occurrence: None)
  Receive Date: 20040413
  Receipt Date: 20040406
  Transmission Date: 20050107
  Serious: Yes (Hospitalization)
  Sender: FDA-Public Use
  Company Number: US-JNJFOC-20040401665

PATIENT
  Sex: Male

DRUGS (3)
  1. ORTHO EVRA [Suspect]
     Indication: CONTRACEPTION
     Dosage: 1 DOSE(S), 3 IN 4 WEEK, TRANSPLACENTAL
     Route: 064
  2. ALBUTEROL [Suspect]
     Indication: ASTHMA
  3. PRENATE GT (PRENATE ^SANOFI WINTHROP^ [Concomitant]

REACTIONS (3)
  - COLLAPSE OF LUNG [None]
  - DRUG EXPOSURE DURING PREGNANCY [None]
  - NEONATAL PNEUMONIA [None]
